FAERS Safety Report 10510138 (Version 1)
Quarter: 2014Q4

REPORT INFORMATION
  Report Type: Spontaneous
  Country: US (occurrence: None)
  Receive Date: 20141009
  Receipt Date: 20141009
  Transmission Date: 20150528
  Serious: Yes (Other)
  Sender: FDA-Public Use
  Company Number: None

PATIENT
  Age: 66 Year
  Sex: Female
  Weight: 59.88 kg

DRUGS (2)
  1. THYROXINE [Suspect]
     Active Substance: LEVOTHYROXINE
  2. SIMVASTATIN. [Suspect]
     Active Substance: SIMVASTATIN
     Indication: BLOOD CHOLESTEROL INCREASED
     Dosage: 1 PILL PER DAY ONCE DAILY BY MOUTH
     Route: 048
     Dates: start: 201212, end: 201408

REACTIONS (11)
  - Joint swelling [None]
  - Insomnia [None]
  - Paraesthesia [None]
  - Pruritus [None]
  - Pain [None]
  - Hypoaesthesia [None]
  - Unevaluable event [None]
  - Arthritis [None]
  - Fear [None]
  - Pyrexia [None]
  - Local swelling [None]

NARRATIVE: CASE EVENT DATE: 20120101
